FAERS Safety Report 24737456 (Version 1)
Quarter: 2024Q4

REPORT INFORMATION
  Report Type: Spontaneous
  Country: US (occurrence: None)
  Receive Date: 20241214
  Receipt Date: 20241214
  Transmission Date: 20250114
  Serious: Yes (Hospitalization)
  Sender: Public
  Company Number: None

PATIENT
  Age: 81 Year
  Sex: Male

DRUGS (16)
  1. TACROLIMUS [Suspect]
     Active Substance: TACROLIMUS
     Indication: Renal transplant
     Dosage: FREQ: TAKE 1 CAPSULE BY MOUTH TWICE A DAY
     Route: 048
     Dates: start: 20200611
  2. MOUNJARO [Concomitant]
     Active Substance: TIRZEPATIDE
  3. FREESTY LIBR MIS 2 READER [Concomitant]
  4. LOSARTAN POTASSIUM [Concomitant]
     Active Substance: LOSARTAN POTASSIUM
  5. BUMETANIDE [Concomitant]
     Active Substance: BUMETANIDE
  6. ATORVASTATIN [Concomitant]
     Active Substance: ATORVASTATIN
  7. FENOFIBRATE [Concomitant]
     Active Substance: FENOFIBRATE
  8. FREESTY LIBR KIT 2 SENSOR [Concomitant]
  9. FLECAINIDE [Suspect]
     Active Substance: FLECAINIDE
  10. PREDNISONE [Suspect]
     Active Substance: PREDNISONE
  11. MUPIROCIN OIN [Concomitant]
  12. KETOCONAZOLE [Concomitant]
     Active Substance: KETOCONAZOLE
  13. FLUOROURACIL CRE [Concomitant]
  14. TOLTERONDIN ER [Concomitant]
  15. ELIQUIS [Concomitant]
     Active Substance: APIXABAN
  16. MYCOPHENOLIC ACID [Concomitant]
     Active Substance: MYCOPHENOLIC ACID

REACTIONS (1)
  - Cerebrovascular accident [None]

NARRATIVE: CASE EVENT DATE: 20241213
